FAERS Safety Report 10950933 (Version 1)
Quarter: 2015Q1

REPORT INFORMATION
  Report Type: Spontaneous
  Country: US (occurrence: None)
  Receive Date: 20150226
  Receipt Date: 20150226
  Transmission Date: 20150721
  Serious: Yes (Other)
  Sender: FDA-Public Use
  Company Number: TPA2013A05415

PATIENT
  Age: 82 Year
  Sex: Male
  Weight: 80.29 kg

DRUGS (4)
  1. GLYBURIDE (GLIBENCLAMIDE) [Concomitant]
     Active Substance: GLYBURIDE
  2. AVANDIA (ROSIGLITAZONE MALEATE) [Concomitant]
  3. ACTOS [Suspect]
     Active Substance: PIOGLITAZONE HYDROCHLORIDE
     Indication: TYPE 2 DIABETES MELLITUS
  4. DIABETA [Concomitant]
     Active Substance: GLYBURIDE

REACTIONS (2)
  - Bladder cancer [None]
  - Cardiac failure [None]

NARRATIVE: CASE EVENT DATE: 201001
